FAERS Safety Report 14452330 (Version 3)
Quarter: 2019Q1

REPORT INFORMATION
  Report Type: Report from Study
  Country: JP (occurrence: JP)
  Receive Date: 20180129
  Receipt Date: 20190322
  Transmission Date: 20190417
  Serious: Yes (Hospitalization)
  Sender: FDA-Public Use
  Company Number: PHJP2017JP025045

PATIENT
  Sex: Male

DRUGS (1)
  1. VOTRIENT [Suspect]
     Active Substance: PAZOPANIB HYDROCHLORIDE
     Indication: RENAL CELL CARCINOMA STAGE IV
     Dosage: 400 MG, QD
     Route: 048
     Dates: start: 20160201, end: 20160301

REACTIONS (4)
  - Chromaturia [Unknown]
  - Jaundice [Unknown]
  - Decreased appetite [Unknown]
  - Drug-induced liver injury [Recovered/Resolved]

NARRATIVE: CASE EVENT DATE: 20160301
